FAERS Safety Report 5871216-2 (Version None)
Quarter: 2008Q3

REPORT INFORMATION
  Report Type: 
  Country: None (occurrence: None)
  Receive Date: 20080829
  Receipt Date: 20080730
  Transmission Date: 20090109
  Serious: Yes (Death, Life-Threatening, Hospitalization)
  Sender: FDA-Public Use
  Company Number: 2008-00827FE

PATIENT
  Age: 17 Month
  Sex: Male

DRUGS (2)
  1. GONADORELIN INJ [Suspect]
     Dosage: 100 MCG ONCE IV
     Route: 042
     Dates: start: 20061211, end: 20061211
  2. PREGNYL [Suspect]
     Indication: CRYPTORCHISM
     Dosage: 1500 IU IM
     Route: 030
     Dates: start: 20061211, end: 20061213

REACTIONS (4)
  - DIARRHOEA [None]
  - INTESTINAL ISCHAEMIA [None]
  - SYNCOPE [None]
  - VARICELLA [None]
